FAERS Safety Report 8713031 (Version 2)
Quarter: 2012Q4

REPORT INFORMATION
  Report Type: 
  Country: JP (occurrence: JP)
  Receive Date: 20120808
  Receipt Date: 20120914
  Transmission Date: 20130627
  Serious: No
  Sender: FDA-Public Use
  Company Number: JP-ABBOTT-12P-087-0964661-00

PATIENT
  Age: 55 Year
  Sex: Male

DRUGS (3)
  1. LIPIDIL [Suspect]
     Indication: HYPERLIPIDAEMIA
     Route: 048
     Dates: start: 1998, end: 20120607
  2. URINORM [Concomitant]
     Indication: HYPERURICAEMIA
     Route: 048
     Dates: start: 1998, end: 20120607
  3. ALESION [Concomitant]
     Indication: PRODUCT USED FOR UNKNOWN INDICATION
     Route: 048
     Dates: start: 1998, end: 20120607

REACTIONS (1)
  - Hepatic function abnormal [Recovered/Resolved]
